FAERS Safety Report 22621785 (Version 2)
Quarter: 2025Q4

REPORT INFORMATION
  Report Type: Spontaneous
  Country: US (occurrence: US)
  Receive Date: 20230620
  Receipt Date: 20251028
  Transmission Date: 20260118
  Serious: Yes (Other)
  Sender: JAZZ
  Company Number: US-JAZZ PHARMACEUTICALS-2023-US-013133

PATIENT
  Age: 65 Year
  Sex: Male

DRUGS (3)
  1. ZEPZELCA [Suspect]
     Active Substance: LURBINECTEDIN
     Indication: Small cell lung cancer
     Dosage: 3.2 MILLIGRAM/SQ. METER, EVERY 21 DAYS
  2. ZEPZELCA [Suspect]
     Active Substance: LURBINECTEDIN
     Dosage: 2.6 MILLIGRAM/SQ. METER
  3. ZEPZELCA [Suspect]
     Active Substance: LURBINECTEDIN
     Dosage: 2 MILLIGRAM/SQ. METER

REACTIONS (8)
  - Small cell lung cancer [Recovering/Resolving]
  - Neuropathy peripheral [Unknown]
  - Asthenia [Unknown]
  - Decreased appetite [Unknown]
  - Anaemia [Recovered/Resolved]
  - Fatigue [Unknown]
  - Dyspnoea [Unknown]
  - Constipation [Unknown]
